FAERS Safety Report 13256907 (Version 2)
Quarter: 2017Q1

REPORT INFORMATION
  Report Type: Spontaneous
  Country: US (occurrence: US)
  Receive Date: 20170221
  Receipt Date: 20170303
  Transmission Date: 20170428
  Serious: No
  Sender: FDA-Public Use
  Company Number: US-ASTRAZENECA-2017SE18220

PATIENT
  Sex: Male

DRUGS (2)
  1. HUMALOG [Concomitant]
     Active Substance: INSULIN LISPRO
     Route: 065
  2. BYDUREON [Suspect]
     Active Substance: EXENATIDE
     Route: 065

REACTIONS (2)
  - Device issue [Unknown]
  - Malaise [Unknown]
